FAERS Safety Report 8121951-0 (Version None)
Quarter: 2012Q1

REPORT INFORMATION
  Report Type: 
  Country: None (occurrence: None)
  Receive Date: 20120208
  Receipt Date: 20120206
  Transmission Date: 20120608
  Serious: Yes (Death, Hospitalization)
  Sender: FDA-Public Use
  Company Number: BR-ROCHE-1023533

PATIENT
  Sex: Female
  Weight: 63 kg

DRUGS (6)
  1. CORTICOSTEROID (UNK INGREDIENTS) [Concomitant]
  2. TRAMADOL HYDROCHLORIDE [Concomitant]
  3. OMEPRAZOLE [Concomitant]
  4. MABTHERA [Suspect]
     Indication: PRODUCT USED FOR UNKNOWN INDICATION
     Route: 042
     Dates: start: 20100101
  5. RISEDRONATE SODIUM [Concomitant]
  6. AMITRIPTYLINE HCL [Concomitant]

REACTIONS (4)
  - GASTROINTESTINAL NEOPLASM [None]
  - DEATH [None]
  - INFECTION [None]
  - MALAISE [None]
